FAERS Safety Report 18794254 (Version 1)
Quarter: 2021Q1

REPORT INFORMATION
  Report Type: Spontaneous
  Country: US (occurrence: US)
  Receive Date: 20210127
  Receipt Date: 20210127
  Transmission Date: 20210419
  Serious: No
  Sender: FDA-Public Use
  Company Number: US-PERRIGO-20US008806

PATIENT
  Age: 6 Month
  Sex: Female
  Weight: 6.35 kg

DRUGS (3)
  1. IBUPROFEN. [Suspect]
     Active Substance: IBUPROFEN
     Dosage: 50 MG, ONCE AT 0850
     Route: 048
     Dates: start: 20200617, end: 20200617
  2. IBUPROFEN. [Suspect]
     Active Substance: IBUPROFEN
     Indication: PYREXIA
     Dosage: 50 MG, BID, PRN
     Route: 048
     Dates: start: 20200613, end: 20200618
  3. IBUPROFEN. [Suspect]
     Active Substance: IBUPROFEN
     Dosage: 50 MG, ONCE AT 0720
     Route: 048
     Dates: start: 20200617, end: 20200617

REACTIONS (1)
  - Extra dose administered [Recovered/Resolved]

NARRATIVE: CASE EVENT DATE: 20200617
